FAERS Safety Report 5649484-1 (Version None)
Quarter: 2008Q1

REPORT INFORMATION
  Report Type: 
  Country: None (occurrence: None)
  Receive Date: 20080131
  Receipt Date: 20071127
  Transmission Date: 20080703
  Serious: No
  Sender: FDA-Public Use
  Company Number: US200709002537

PATIENT
  Age: 57 Year
  Sex: Female
  Weight: 71.7 kg

DRUGS (7)
  1. BYETTA [Suspect]
     Indication: TYPE 2 DIABETES MELLITUS
     Dosage: 5 UG 2/D, SUBCUTANEOUS
     Route: 058
     Dates: start: 20050601, end: 20050701
  2. BYETTA [Suspect]
     Indication: TYPE 2 DIABETES MELLITUS
     Dosage: 5 UG 2/D, SUBCUTANEOUS
     Route: 058
     Dates: start: 20051201, end: 20060101
  3. BYETTA [Suspect]
     Indication: TYPE 2 DIABETES MELLITUS
     Dosage: 5 UG 2/D, SUBCUTANEOUS
     Route: 058
     Dates: start: 20050701
  4. BYETTA [Suspect]
     Indication: TYPE 2 DIABETES MELLITUS
     Dosage: 5 UG 2/D, SUBCUTANEOUS
     Route: 058
     Dates: start: 20060101
  5. METFORMIN HCL [Concomitant]
  6. INSULIN (INSULIN) [Concomitant]
  7. VIOXX [Concomitant]

REACTIONS (8)
  - BLOOD GLUCOSE INCREASED [None]
  - DRUG EFFECT DECREASED [None]
  - DRY MOUTH [None]
  - EARLY SATIETY [None]
  - FOOD CRAVING [None]
  - HUNGER [None]
  - MALAISE [None]
  - WEIGHT DECREASED [None]
